FAERS Safety Report 5510682-9 (Version None)
Quarter: 2007Q4

REPORT INFORMATION
  Report Type: 
  Country: None (occurrence: None)
  Receive Date: 20071107
  Receipt Date: 20070926
  Transmission Date: 20080405
  Serious: Yes (Death)
  Sender: FDA-Public Use
  Company Number: B0493521A

PATIENT
  Age: 6 Month
  Sex: Female

DRUGS (2)
  1. PARACETAMOL + PSEUDOEPHEDRINE (FORMULATION UKNOWN) GENE (ACETAMINOPHEN [Suspect]
  2. CARBINOXAMINE + DEXTROMET (FORMULATION UNKNOWN) (CARBINOXMINE + DEXTRO [Suspect]

REACTIONS (3)
  - BRONCHOPNEUMONIA [None]
  - DRUG TOXICITY [None]
  - EMPHYSEMA [None]
